FAERS Safety Report 5390272-1 (Version None)
Quarter: 2007Q3

REPORT INFORMATION
  Report Type: 
  Country: None (occurrence: None)
  Receive Date: 20070718
  Receipt Date: 20070709
  Transmission Date: 20080115
  Serious: Yes (Hospitalization, Other)
  Sender: FDA-Public Use
  Company Number: US-KINGPHARMUSA00001-K200601028

PATIENT

DRUGS (3)
  1. ALTACE [Suspect]
     Indication: CONGESTIVE CARDIOMYOPATHY
     Dates: start: 20030101
  2. ALTACE [Suspect]
     Indication: CARDIAC FAILURE
  3. ALTACE [Suspect]
     Indication: ARRHYTHMIA

REACTIONS (2)
  - COELIAC DISEASE [None]
  - ENTERITIS [None]
